FAERS Safety Report 9195855 (Version 1)
Quarter: 2013Q1

REPORT INFORMATION
  Report Type: Spontaneous
  Country: US (occurrence: None)
  Receive Date: 20130313
  Receipt Date: 20130313
  Transmission Date: 20140127
  Serious: Yes (Other)
  Sender: FDA-Public Use
  Company Number: 2013034911

PATIENT
  Sex: Female
  Weight: 60.33 kg

DRUGS (23)
  1. ZEMAIRA (ALPHA-1 PROTEINASE INHIBITOR (HUMAN)) [Suspect]
     Indication: ASTHMA
     Route: 042
  2. ZEMAIRA (ALPHA-1 PROTEINASE INHIBITOR (HUMAN)) [Suspect]
     Indication: ALPHA-1 ANTI-TRYPSIN DEFICIENCY
     Route: 042
  3. PREDNISONE [Concomitant]
  4. CIPRO [Concomitant]
  5. CALTRATE [Concomitant]
  6. VITAMIN E [Concomitant]
  7. VITAMIN A [Concomitant]
  8. ADVAIR [Concomitant]
  9. FISH OIL [Concomitant]
  10. ASPIRIN [Concomitant]
  11. DIPHENHYDRAMINE [Concomitant]
  12. SODIUM CHLORIDE [Concomitant]
  13. EPI-PEN [Concomitant]
  14. LMX [Concomitant]
  15. SULFASALAZINE [Concomitant]
  16. MULTIVITAMINS [Concomitant]
  17. HYDROXYCHLOROQUINE [Concomitant]
  18. OXYGEN [Concomitant]
  19. SINGULAIR [Concomitant]
  20. SPIRIVA [Concomitant]
  21. VITAMIN B12 [Concomitant]
  22. ALBUTEROL [Concomitant]
  23. ALPRAZOLAM [Concomitant]

REACTIONS (1)
  - Lower respiratory tract infection [None]
